FAERS Safety Report 8923480 (Version 1)
Quarter: 2012Q4

REPORT INFORMATION
  Report Type: 
  Country: ES (occurrence: ES)
  Receive Date: 20121123
  Receipt Date: 20121123
  Transmission Date: 20130627
  Serious: Yes (Hospitalization)
  Sender: FDA-Public Use
  Company Number: ES-PFIZER INC-2012290974

PATIENT
  Age: 83 Year
  Sex: Male

DRUGS (3)
  1. LINEZOLID [Suspect]
     Indication: PSOAS ABSCESS
     Dosage: 1200 mg, UNK
     Route: 041
     Dates: start: 20110418, end: 20110606
  2. VANCOMYCIN [Suspect]
     Indication: PSOAS ABSCESS
     Dosage: 2 g, UNK
     Route: 041
     Dates: start: 20110504, end: 20110610
  3. TAZOCEL [Suspect]
     Indication: PSOAS ABSCESS
     Dosage: 12 g, UNK
     Route: 041
     Dates: start: 20110419, end: 20110531

REACTIONS (5)
  - Rash maculo-papular [Recovered/Resolved]
  - Drug reaction with eosinophilia and systemic symptoms [Recovered/Resolved]
  - Pleural effusion [Recovered/Resolved]
  - Pyrexia [Recovered/Resolved]
  - Dyspnoea [Recovered/Resolved]
